FAERS Safety Report 16925515 (Version 1)
Quarter: 2019Q4

REPORT INFORMATION
  Report Type: Spontaneous
  Country: US (occurrence: US)
  Receive Date: 20190823
  Receipt Date: 20190823
  Transmission Date: 20200122
  Serious: No
  Sender: FDA-Public Use
  Company Number: None

PATIENT
  Age: 38 Year
  Sex: Male

DRUGS (1)
  1. BOTOX [Suspect]
     Active Substance: ONABOTULINUMTOXINA
     Indication: URGE INCONTINENCE
     Dosage: ?          OTHER DOSE:100 UNITS/VIAL;?
     Route: 043
     Dates: start: 20190821

REACTIONS (1)
  - Injection site haemorrhage [None]

NARRATIVE: CASE EVENT DATE: 20190821
